FAERS Safety Report 17033241 (Version 2)
Quarter: 2019Q4

REPORT INFORMATION
  Report Type: Spontaneous
  Country: US (occurrence: US)
  Receive Date: 20191114
  Receipt Date: 20191213
  Transmission Date: 20200122
  Serious: No
  Sender: FDA-Public Use
  Company Number: US-SA-2019SA310596

PATIENT
  Age: 37 Year
  Sex: Female
  Weight: 92.98 kg

DRUGS (1)
  1. DUPIXENT [Suspect]
     Active Substance: DUPILUMAB
     Indication: ECZEMA
     Dosage: 300 MG, QOW
     Route: 058
     Dates: start: 20190504

REACTIONS (3)
  - Eczema [Recovered/Resolved]
  - Dry skin [Recovered/Resolved]
  - Rash [Unknown]

NARRATIVE: CASE EVENT DATE: 201911
